FAERS Safety Report 5452080-2 (Version None)
Quarter: 2007Q3

REPORT INFORMATION
  Report Type: 
  Country: None (occurrence: None)
  Receive Date: 20070914
  Receipt Date: 20070904
  Transmission Date: 20080115
  Serious: Yes (Other)
  Sender: FDA-Public Use
  Company Number: US-RB-007733-07

PATIENT
  Age: 24 Year
  Sex: Male

DRUGS (2)
  1. SUBOXONE [Suspect]
     Route: 060
     Dates: start: 20070814
  2. SUBOXONE [Suspect]
     Route: 060
     Dates: start: 20070801, end: 20070801

REACTIONS (1)
  - CONVULSION [None]
